FAERS Safety Report 15950203 (Version 3)
Quarter: 2019Q2

REPORT INFORMATION
  Report Type: Spontaneous
  Country: AU (occurrence: AU)
  Receive Date: 20190212
  Receipt Date: 20190429
  Transmission Date: 20190711
  Serious: Yes (Disabling, Other)
  Sender: FDA-Public Use
  Company Number: AU-JNJFOC-20190200106

PATIENT
  Sex: Male
  Weight: 104 kg

DRUGS (1)
  1. TREMFYA [Suspect]
     Active Substance: GUSELKUMAB
     Indication: PSORIATIC ARTHROPATHY
     Route: 065

REACTIONS (3)
  - Off label use [Unknown]
  - Arthritis [Recovering/Resolving]
  - Product use in unapproved indication [Unknown]
